FAERS Safety Report 5670580-7 (Version None)
Quarter: 2008Q1

REPORT INFORMATION
  Report Type: 
  Country: None (occurrence: None)
  Receive Date: 20080314
  Receipt Date: 20080314
  Transmission Date: 20080703
  Serious: Yes (Death)
  Sender: FDA-Public Use
  Company Number: None

PATIENT
  Age: 76 Year
  Sex: Female
  Weight: 54.4316 kg

DRUGS (1)
  1. PROCRIT [Suspect]
     Indication: REFRACTORY ANAEMIA

REACTIONS (2)
  - BREAST CANCER FEMALE [None]
  - MALIGNANT NEOPLASM PROGRESSION [None]
